FAERS Safety Report 8898407 (Version 2)
Quarter: 2014Q1

REPORT INFORMATION
  Report Type: Report from Study
  Country: US (occurrence: US)
  Receive Date: 20121109
  Receipt Date: 20140212
  Transmission Date: 20141002
  Serious: Yes (Other)
  Sender: FDA-Public Use
  Company Number: US-009507513-1211USA004000

PATIENT
  Sex: 0

DRUGS (3)
  1. TEMOZOLOMIDE [Suspect]
     Indication: GLIOBLASTOMA MULTIFORME
     Dosage: 75 MG/M2, QD
     Route: 048
  2. TEMOZOLOMIDE [Suspect]
     Dosage: 150 TO 200 MG/M2, QD FOR 5 DAYS EVERY 28 DAYS
     Route: 048
  3. BEVACIZUMAB [Suspect]
     Dosage: 10 MG, BIM

REACTIONS (1)
  - Neutropenia [Unknown]
